FAERS Safety Report 16086749 (Version 5)
Quarter: 2019Q2

REPORT INFORMATION
  Report Type: Report from Study
  Country: US (occurrence: US)
  Receive Date: 20190318
  Receipt Date: 20190527
  Transmission Date: 20190711
  Serious: Yes (Other)
  Sender: FDA-Public Use
  Company Number: PHEH2019US011343

PATIENT
  Sex: Female

DRUGS (1)
  1. GLEEVEC [Suspect]
     Active Substance: IMATINIB MESYLATE
     Indication: PRODUCT USED FOR UNKNOWN INDICATION
     Route: 065

REACTIONS (12)
  - Blindness [Unknown]
  - Upper limb fracture [Unknown]
  - Dysstasia [Unknown]
  - Herpes zoster [Unknown]
  - Suicidal ideation [Unknown]
  - Crying [Unknown]
  - Fracture [Unknown]
  - Visual impairment [Unknown]
  - Feeling abnormal [Unknown]
  - Pneumonia [Unknown]
  - Fall [Unknown]
  - Confusional state [Unknown]
